FAERS Safety Report 7391332-6 (Version None)
Quarter: 2011Q1

REPORT INFORMATION
  Report Type: 
  Country: None (occurrence: None)
  Receive Date: 20110324
  Receipt Date: 20110311
  Transmission Date: 20110831
  Serious: Yes (Death, Other)
  Sender: FDA-Public Use
  Company Number: 2011000785

PATIENT
  Age: 70 Year
  Sex: Female

DRUGS (1)
  1. TARCEVA [Suspect]
     Indication: PRODUCT USED FOR UNKNOWN INDICATION
     Dosage: (150 MG,QD),ORAL
     Route: 048

REACTIONS (3)
  - METASTASES TO CENTRAL NERVOUS SYSTEM [None]
  - NEOPLASM MALIGNANT [None]
  - SKIN ULCER [None]
